FAERS Safety Report 14619817 (Version 1)
Quarter: 2018Q1

REPORT INFORMATION
  Report Type: Spontaneous
  Country: US (occurrence: US)
  Receive Date: 20180309
  Receipt Date: 20180309
  Transmission Date: 20180509
  Serious: Yes (Other)
  Sender: FDA-Public Use
  Company Number: PHHY2018US036338

PATIENT
  Age: 55 Year
  Sex: Female

DRUGS (3)
  1. MIDAZOLAM [Concomitant]
     Active Substance: MIDAZOLAM HYDROCHLORIDE
     Indication: PRODUCT USED FOR UNKNOWN INDICATION
     Dosage: UNK
     Route: 065
  2. FENTANYL. [Suspect]
     Active Substance: FENTANYL
     Indication: PRODUCT USED FOR UNKNOWN INDICATION
     Dosage: UNK
     Route: 065
  3. METHADONE [Suspect]
     Active Substance: METHADONE HYDROCHLORIDE
     Indication: PRODUCT USED FOR UNKNOWN INDICATION
     Dosage: 50 MG, UNK (2 DOSES)
     Route: 065

REACTIONS (7)
  - Nausea [Unknown]
  - Acute kidney injury [Unknown]
  - Respiratory acidosis [Unknown]
  - Pneumonia aspiration [Unknown]
  - Respiratory failure [Unknown]
  - Vomiting [Unknown]
  - Coma [Unknown]
